FAERS Safety Report 18624246 (Version 1)
Quarter: 2020Q4

REPORT INFORMATION
  Report Type: Spontaneous
  Country: DE (occurrence: DE)
  Receive Date: 20201216
  Receipt Date: 20201216
  Transmission Date: 20210114
  Serious: Yes (Other)
  Sender: FDA-Public Use
  Company Number: DE-EISAI MEDICAL RESEARCH-EC-2020-085077

PATIENT
  Sex: Female

DRUGS (6)
  1. FYCOMPA [Suspect]
     Active Substance: PERAMPANEL
     Indication: FOETAL EXPOSURE DURING PREGNANCY
     Route: 064
     Dates: start: 2019, end: 2020
  2. LAMOTRIGINE. [Suspect]
     Active Substance: LAMOTRIGINE
     Indication: FOETAL EXPOSURE DURING PREGNANCY
     Dosage: FREQUENCY UNKNOWN
     Route: 064
     Dates: start: 2019, end: 2020
  3. LACOSAMIDE. [Suspect]
     Active Substance: LACOSAMIDE
     Dosage: FREQUENCY UNKNOWN
     Route: 064
     Dates: start: 2019, end: 2020
  4. FYCOMPA [Suspect]
     Active Substance: PERAMPANEL
     Route: 064
     Dates: start: 2020, end: 20200810
  5. LAMOTRIGINE. [Suspect]
     Active Substance: LAMOTRIGINE
     Dosage: DOSE UP-TITRATED (DOSE AND FREQUENCY UNKNOWN)
     Route: 064
     Dates: start: 2020, end: 20200810
  6. LACOSAMIDE. [Suspect]
     Active Substance: LACOSAMIDE
     Dosage: DOSE UP-TITRATED (DOSE AND FREQUENCY UNKNOWN)
     Route: 064
     Dates: start: 2020, end: 20200810

REACTIONS (2)
  - Cataract [Unknown]
  - Foetal exposure during pregnancy [Unknown]

NARRATIVE: CASE EVENT DATE: 2020
